FAERS Safety Report 5405134-0 (Version None)
Quarter: 2007Q3

REPORT INFORMATION
  Report Type: 
  Country: None (occurrence: None)
  Receive Date: 20070803
  Receipt Date: 20070724
  Transmission Date: 20080115
  Serious: Yes (Hospitalization)
  Sender: FDA-Public Use
  Company Number: US-MERCK-0707USA04481

PATIENT
  Age: 16 Year
  Sex: Male

DRUGS (1)
  1. RIZATRIPTAN BENZOATE [Suspect]
     Indication: HEADACHE
     Route: 065

REACTIONS (2)
  - MIGRAINE [None]
  - NO THERAPEUTIC RESPONSE [None]
